FAERS Safety Report 19511496 (Version 1)
Quarter: 2021Q3

REPORT INFORMATION
  Report Type: Report from Study
  Country: JP (occurrence: JP)
  Receive Date: 20210709
  Receipt Date: 20210709
  Transmission Date: 20211014
  Serious: Yes (Life-Threatening, Hospitalization)
  Sender: FDA-Public Use
  Company Number: JP-ROCHE-2864189

PATIENT
  Age: 76 Year
  Sex: Male
  Weight: 59 kg

DRUGS (8)
  1. TAKECAB [Concomitant]
     Active Substance: VONOPRAZAN FUMARATE
  2. SILODOSIN OD [Concomitant]
  3. CARBOPLATIN. [Concomitant]
     Active Substance: CARBOPLATIN
  4. DEXART [Concomitant]
     Active Substance: DEXAMETHASONE SODIUM PHOSPHATE
  5. ATEZOLIZUMAB. [Suspect]
     Active Substance: ATEZOLIZUMAB
     Indication: LUNG CARCINOMA CELL TYPE UNSPECIFIED STAGE IV
     Dosage: 1200 MILLIGRAM, ONCE/3WEEKS
     Route: 041
     Dates: start: 20190607
  6. ALIMTA [Concomitant]
     Active Substance: PEMETREXED DISODIUM
  7. ALOXI [Concomitant]
     Active Substance: PALONOSETRON HYDROCHLORIDE
  8. LOXOPROFEN SODIUM [Concomitant]
     Active Substance: LOXOPROFEN SODIUM

REACTIONS (2)
  - Cerebrovascular accident [Recovering/Resolving]
  - Haemorrhage intracranial [Recovering/Resolving]

NARRATIVE: CASE EVENT DATE: 20190613
